FAERS Safety Report 6941412-1 (Version None)
Quarter: 2010Q3

REPORT INFORMATION
  Report Type: 
  Country: None (occurrence: None)
  Receive Date: 20100825
  Receipt Date: 20100816
  Transmission Date: 20110219
  Serious: Yes (Hospitalization)
  Sender: FDA-Public Use
  Company Number: GB-CVT-100524

PATIENT

DRUGS (7)
  1. RANEXA [Suspect]
     Indication: ANGINA PECTORIS
     Dates: start: 20091201, end: 20100101
  2. SIMVASTATIN [Suspect]
     Indication: PRODUCT USED FOR UNKNOWN INDICATION
     Dates: end: 20100701
  3. RAMIPRIL                           /00885601/ [Concomitant]
     Indication: CORONARY ARTERY DISEASE
  4. AMLODIPINE [Concomitant]
     Indication: HYPERTENSION
  5. NICORANDIL [Concomitant]
     Indication: CORONARY ARTERY DISEASE
  6. WARFARIN                           /00014801/ [Concomitant]
     Indication: ATRIAL FIBRILLATION
  7. OMEPRAZOLE [Concomitant]

REACTIONS (4)
  - DRUG INTERACTION [None]
  - MYALGIA [None]
  - RENAL FAILURE ACUTE [None]
  - RHABDOMYOLYSIS [None]
